FAERS Safety Report 9828229 (Version 1)
Quarter: 2013Q4

REPORT INFORMATION
  Report Type: Spontaneous
  Country: US (occurrence: None)
  Receive Date: 20131223
  Receipt Date: 20131223
  Transmission Date: 20140711
  Serious: No
  Sender: FDA-Public Use
  Company Number: 221359LEO

PATIENT
  Age: 54 Year
  Sex: Male

DRUGS (1)
  1. PICATO (0.015, GEL) [Suspect]
     Indication: ACTINIC KERATOSIS
     Dosage: (DAILY), TOPICAL
     Route: 061
     Dates: start: 20130417, end: 20130419

REACTIONS (6)
  - Application site erythema [None]
  - Application site pain [None]
  - Scab [None]
  - Application site scab [None]
  - Drug administration error [None]
  - Drug administered at inappropriate site [None]
